FAERS Safety Report 18761713 (Version 1)
Quarter: 2021Q1

REPORT INFORMATION
  Report Type: Report from Study
  Country: US (occurrence: US)
  Receive Date: 20210120
  Receipt Date: 20210120
  Transmission Date: 20210419
  Serious: Yes (Hospitalization, Other)
  Sender: FDA-Public Use
  Company Number: US-ASTRAZENECA-2020SF64803

PATIENT
  Age: 22687 Day
  Sex: Male

DRUGS (1)
  1. CALQUENCE [Suspect]
     Active Substance: ACALABRUTINIB
     Indication: CHRONIC LYMPHOCYTIC LEUKAEMIA
     Route: 048
     Dates: start: 20201130

REACTIONS (7)
  - Dyspnoea [Unknown]
  - Flatulence [Unknown]
  - Pleural effusion [Unknown]
  - Headache [Recovered/Resolved]
  - Rash macular [Recovered/Resolved]
  - Blood iron decreased [Recovering/Resolving]
  - Pulmonary oedema [Unknown]

NARRATIVE: CASE EVENT DATE: 20201202
